FAERS Safety Report 6185919-6 (Version None)
Quarter: 2009Q2

REPORT INFORMATION
  Report Type: 
  Country: None (occurrence: None)
  Receive Date: 20090507
  Receipt Date: 20090504
  Transmission Date: 20091009
  Serious: Yes (Other)
  Sender: FDA-Public Use
  Company Number: 2009003672

PATIENT
  Age: 36 Year
  Sex: Female
  Weight: 110.2241 kg

DRUGS (12)
  1. PROVIGIL [Suspect]
     Indication: SLEEP APNOEA SYNDROME
     Dosage: 200 MG (200 MG,  1 IN 1 D),ORAL
     Route: 048
     Dates: start: 20090409
  2. MEDROL DOSE PAK (METHYLPREDNISOLONE) [Concomitant]
  3. PEPCID [Concomitant]
  4. BENADRYL [Concomitant]
  5. PRISTIQ (VENLAFAXINE) [Concomitant]
  6. XANAX [Concomitant]
  7. HYOMAX (HYOSCYAMINE) [Concomitant]
  8. LASIX [Concomitant]
  9. POTASSIUM CHLORIDE [Concomitant]
  10. IRON (IRON) [Concomitant]
  11. MULTIVITAMIN (ERGOCALCIFEROL, ASCORBIC ACID, PYRIDOXINE HYDROCHLORIDE, [Concomitant]
  12. METAMUCIL (PLANTAGO OVATA) [Concomitant]

REACTIONS (1)
  - LIP SWELLING [None]
